FAERS Safety Report 18555750 (Version 1)
Quarter: 2020Q4

REPORT INFORMATION
  Report Type: Spontaneous
  Country: US (occurrence: US)
  Receive Date: 20201127
  Receipt Date: 20201127
  Transmission Date: 20210114
  Serious: No
  Sender: FDA-Public Use
  Company Number: US-PFIZER INC-2020468786

PATIENT
  Age: 56 Year
  Sex: Female
  Weight: 117.93 kg

DRUGS (1)
  1. DICLOFENAC EPOLAMINE [Suspect]
     Active Substance: DICLOFENAC EPOLAMINE
     Indication: PAIN
     Dosage: 75 MG, 3X/DAY

REACTIONS (1)
  - Abdominal discomfort [Unknown]
